FAERS Safety Report 6822329-X (Version None)
Quarter: 2010Q3

REPORT INFORMATION
  Report Type: 
  Country: None (occurrence: None)
  Receive Date: 20100708
  Receipt Date: 20100702
  Transmission Date: 20110219
  Serious: Yes (Disabling)
  Sender: FDA-Public Use
  Company Number: IE-ASTRAZENECA-2010SE28280

PATIENT
  Age: 78 Year
  Sex: Male

DRUGS (1)
  1. ZOLADEX [Suspect]
     Indication: PROSTATE CANCER
     Dosage: EVERY THREE MONTHS.
     Route: 058
     Dates: start: 20010101

REACTIONS (1)
  - MUSCULAR WEAKNESS [None]
